FAERS Safety Report 5192323-6 (Version None)
Quarter: 2006Q4

REPORT INFORMATION
  Report Type: 
  Country: None (occurrence: None)
  Receive Date: 20061227
  Receipt Date: 20060703
  Transmission Date: 20070319
  Serious: Yes (Other)
  Sender: FDA-Public Use
  Company Number: GB-PFIZER INC-2006083479

PATIENT
  Age: 58 Year
  Sex: Male
  Weight: 83.2 kg

DRUGS (8)
  1. VFEND [Suspect]
     Indication: ASPERGILLOSIS
     Route: 065
  2. DEXAMETHASONE [Suspect]
     Route: 048
  3. OMEPRAZOLE [Suspect]
     Route: 048
     Dates: start: 20060401
  4. AMITRIPTYLINE HYDROCHLORIDE [Suspect]
  5. ZOPICLONE [Suspect]
     Route: 048
     Dates: start: 20060401
  6. RITUXIMAB [Suspect]
     Route: 042
     Dates: start: 20060619, end: 20060619
  7. MABTHERA [Suspect]
     Dates: start: 20060619, end: 20060619
  8. AMITRIPTYLINE HCL [Concomitant]
     Route: 048

REACTIONS (6)
  - AGITATION [None]
  - AMNESIA [None]
  - BEDRIDDEN [None]
  - CHILLS [None]
  - CONFUSIONAL STATE [None]
  - FEELING ABNORMAL [None]
